FAERS Safety Report 9732355 (Version 1)
Quarter: 2013Q4

REPORT INFORMATION
  Report Type: Spontaneous
  Country: US (occurrence: US)
  Receive Date: 20131204
  Receipt Date: 20131204
  Transmission Date: 20140711
  Serious: Yes (Other)
  Sender: FDA-Public Use
  Company Number: US-PFIZER INC-2013345937

PATIENT
  Age: 67 Year
  Sex: Female
  Weight: 90.7 kg

DRUGS (3)
  1. CELEBREX [Suspect]
     Indication: RHEUMATOID ARTHRITIS
     Dosage: UNK
  2. LANTUS [Concomitant]
     Indication: DIABETES MELLITUS
     Dosage: 50 IU, 2X/DAY
  3. METFORMIN [Concomitant]
     Indication: DIABETES MELLITUS
     Dosage: 500 MG, 2X/DAY

REACTIONS (1)
  - Arthropathy [Unknown]
